FAERS Safety Report 7530263-5 (Version None)
Quarter: 2011Q2

REPORT INFORMATION
  Report Type: 
  Country: None (occurrence: None)
  Receive Date: 20110607
  Receipt Date: 20110523
  Transmission Date: 20111010
  Serious: No
  Sender: FDA-Public Use
  Company Number: US-B.I. PHARMACEUTICALS,INC./RIDGEFIELD-2011-BP-13820BP

PATIENT
  Age: 81 Year
  Sex: Female

DRUGS (5)
  1. COD LIVER OIL [Concomitant]
     Route: 048
  2. METAMUCIL-2 [Concomitant]
     Route: 048
  3. VITAMIN D [Concomitant]
     Route: 048
  4. SPIRIVA [Suspect]
     Indication: BRONCHITIS CHRONIC
     Dosage: 18 MCG
     Route: 055
     Dates: start: 20110401
  5. VITAMIN TAB [Concomitant]
     Route: 048

REACTIONS (1)
  - DIARRHOEA [None]
